FAERS Safety Report 6484250-9 (Version None)
Quarter: 2009Q4

REPORT INFORMATION
  Report Type: 
  Country: None (occurrence: None)
  Receive Date: 20091209
  Receipt Date: 20091203
  Transmission Date: 20100525
  Serious: Yes (Other)
  Sender: FDA-Public Use
  Company Number: B0612426A

PATIENT
  Sex: Male

DRUGS (1)
  1. RELENZA [Suspect]
     Dosage: 10MG TWICE PER DAY
     Route: 055
     Dates: start: 20091120, end: 20091123

REACTIONS (6)
  - ABNORMAL BEHAVIOUR [None]
  - AGGRESSION [None]
  - COMMUNICATION DISORDER [None]
  - FEELING ABNORMAL [None]
  - RESTLESS LEGS SYNDROME [None]
  - SPEECH DISORDER [None]
